FAERS Safety Report 4807157-9 (Version None)
Quarter: 2005Q4

REPORT INFORMATION
  Report Type: 
  Country: None (occurrence: None)
  Receive Date: 20051019
  Receipt Date: 20051003
  Transmission Date: 20060501
  Serious: No
  Sender: FDA-Public Use
  Company Number: GBS051018646

PATIENT
  Age: 13 Year
  Sex: Male

DRUGS (2)
  1. STRATTERA [Suspect]
     Dosage: 10 MG/3 DAY
  2. RITALIN [Concomitant]

REACTIONS (6)
  - BLOOD BILIRUBIN INCREASED [None]
  - CHEST PAIN [None]
  - FEELING ABNORMAL [None]
  - JAUNDICE [None]
  - NASOPHARYNGITIS [None]
  - VIRAL INFECTION [None]
